FAERS Safety Report 7022395-5 (Version None)
Quarter: 2010Q3

REPORT INFORMATION
  Report Type: 
  Country: None (occurrence: None)
  Receive Date: 20100930
  Receipt Date: 20100921
  Transmission Date: 20110219
  Serious: Yes (Other)
  Sender: FDA-Public Use
  Company Number: US-PFIZER INC-2010104288

PATIENT
  Age: 17 Year
  Sex: Male
  Weight: 84 kg

DRUGS (2)
  1. HALCION [Suspect]
     Indication: PREOPERATIVE CARE
     Dosage: 0.25 MG TWO TABLETS, UNK
     Route: 048
  2. HALCION [Suspect]
     Dosage: 3.5 G, UNK
     Route: 048

REACTIONS (4)
  - DRUG INEFFECTIVE [None]
  - INCORRECT DOSE ADMINISTERED [None]
  - PHARYNGEAL OEDEMA [None]
  - PRURITUS [None]
